FAERS Safety Report 7044011-9 (Version None)
Quarter: 2010Q4

REPORT INFORMATION
  Report Type: 
  Country: None (occurrence: None)
  Receive Date: 20101013
  Receipt Date: 20100517
  Transmission Date: 20110411
  Serious: Yes (Other)
  Sender: FDA-Public Use
  Company Number: US-AMGEN-QUU412810

PATIENT
  Age: 52 Year
  Sex: Female

DRUGS (3)
  1. VECTIBIX [Suspect]
     Indication: COLORECTAL CANCER
  2. XELODA [Concomitant]
  3. TYKERB [ INGREDIENT UNKNOWN ] [Concomitant]

REACTIONS (1)
  - SKIN TOXICITY [None]
